FAERS Safety Report 15396098 (Version 1)
Quarter: 2018Q3

REPORT INFORMATION
  Report Type: Spontaneous
  Country: US (occurrence: US)
  Receive Date: 20180912
  Receipt Date: 20180912
  Transmission Date: 20181010
  Serious: Yes (Hospitalization)
  Sender: FDA-Public Use
  Company Number: None

PATIENT
  Age: 47 Year
  Sex: Female
  Weight: 67.5 kg

DRUGS (4)
  1. VERSACLOZ [Suspect]
     Active Substance: CLOZAPINE
     Indication: PSYCHOTIC DISORDER
     Dosage: ?          OTHER FREQUENCY:100MG QAM, 200MG;?
     Route: 048
     Dates: start: 20180801, end: 20180824
  2. LEVITIRACETAM [Concomitant]
     Active Substance: LEVETIRACETAM
     Dates: start: 20180619, end: 20180912
  3. OLANZAPINE. [Concomitant]
     Active Substance: OLANZAPINE
     Dates: start: 20180619, end: 20180912
  4. DEPAKOTE [Concomitant]
     Active Substance: DIVALPROEX SODIUM
     Dates: start: 20180619, end: 20180912

REACTIONS (8)
  - Therapy change [None]
  - Headache [None]
  - Loss of consciousness [None]
  - Fall [None]
  - Oxygen saturation decreased [None]
  - Musculoskeletal stiffness [None]
  - Heart rate increased [None]
  - Seizure [None]

NARRATIVE: CASE EVENT DATE: 20180824
